FAERS Safety Report 7250067-0 (Version None)
Quarter: 2011Q1

REPORT INFORMATION
  Report Type: 
  Country: None (occurrence: None)
  Receive Date: 20110128
  Receipt Date: 20101217
  Transmission Date: 20110831
  Serious: Yes (Hospitalization, Other)
  Sender: FDA-Public Use
  Company Number: US-BAYER-200942960NA

PATIENT
  Sex: Female
  Weight: 75 kg

DRUGS (11)
  1. YASMIN [Suspect]
     Indication: CONTRACEPTION
     Dates: start: 20061101, end: 20061201
  2. CIPROFLOXACIN [Concomitant]
     Dates: start: 20070301
  3. ASCORBIC ACID [Concomitant]
  4. WARFARIN SODIUM [Concomitant]
     Dates: start: 20061201, end: 20081101
  5. CEPHALEXIN [Concomitant]
     Dates: start: 20080701
  6. YASMIN [Suspect]
     Indication: MENSTRUATION IRREGULAR
  7. VOLTAREN [Concomitant]
     Dates: start: 20061207
  8. LOVENOX [Concomitant]
     Dates: start: 20080701, end: 20081101
  9. HEPARIN [Concomitant]
     Dates: start: 20081101, end: 20090201
  10. COUMADIN [Concomitant]
     Dates: start: 20070101, end: 20080801
  11. METRONIDAZOLE [Concomitant]
     Dates: start: 20081101

REACTIONS (4)
  - BRAIN INJURY [None]
  - CEREBRAL VENOUS THROMBOSIS [None]
  - CEREBRAL THROMBOSIS [None]
  - HEADACHE [None]
